FAERS Safety Report 10983950 (Version 1)
Quarter: 2015Q2

REPORT INFORMATION
  Report Type: Spontaneous
  Country: FR (occurrence: None)
  Receive Date: 20150401
  Receipt Date: 20150401
  Transmission Date: 20150821
  Serious: Yes (Other)
  Sender: FDA-Public Use
  Company Number: 2015030058

PATIENT
  Age: 37 Year
  Sex: Female

DRUGS (2)
  1. MESALAZINE (MESALAZINE) [Suspect]
     Active Substance: MESALAMINE
     Indication: CROHN^S DISEASE
     Dates: start: 2001, end: 201010
  2. ADALIMUMAB (ADALIMUMAB) UNKNOWN [Concomitant]
     Active Substance: ADALIMUMAB

REACTIONS (1)
  - Interstitial lung disease [None]

NARRATIVE: CASE EVENT DATE: 201009
